FAERS Safety Report 8775266 (Version 4)
Quarter: 2012Q4

REPORT INFORMATION
  Report Type: 
  Country: JP (occurrence: JP)
  Receive Date: 20120910
  Receipt Date: 20121121
  Transmission Date: 20130627
  Serious: Yes (Death, Hospitalization, Other)
  Sender: FDA-Public Use
  Company Number: JP-AMGEN-JPNSP2012056223

PATIENT
  Age: 55 Year
  Sex: Male
  Weight: 38 kg

DRUGS (11)
  1. VECTIBIX [Suspect]
     Indication: COLON CANCER
     Dosage: 250 mg, q2wk
     Route: 042
     Dates: start: 20120723, end: 20120723
  2. VECTIBIX [Suspect]
     Indication: COLON CANCER
  3. 5-FU [Suspect]
     Indication: COLON CANCER
     Dosage: 560 mg, q2wk
     Route: 040
     Dates: start: 20120723, end: 20120723
  4. 5-FU [Suspect]
     Indication: COLON CANCER
     Dosage: 3390 mg, q2wk
     Route: 041
     Dates: start: 20120723, end: 20120725
  5. LEVOFOLINATE [Suspect]
     Indication: COLON CANCER
     Dosage: 280 mg, q2wk
     Route: 041
     Dates: start: 20120723, end: 20120723
  6. ELPLAT [Suspect]
     Indication: COLON CANCER
     Dosage: 120 mg, q2wk
     Route: 041
     Dates: start: 20120723, end: 20120723
  7. ALOXI [Concomitant]
     Indication: PROPHYLAXIS OF NAUSEA AND VOMITING
     Dosage: 0.75 mg, qd
     Route: 042
     Dates: start: 20120723, end: 20120723
  8. EMEND                              /01627301/ [Concomitant]
     Indication: PROPHYLAXIS OF NAUSEA AND VOMITING
     Dosage: 125 mg, qd
     Route: 048
     Dates: start: 20120723, end: 20120723
  9. EMEND                              /01627301/ [Concomitant]
     Dosage: 160 mg, bid
     Route: 048
     Dates: start: 20120724, end: 20120725
  10. DECADOLONE [Concomitant]
     Indication: PROPHYLAXIS OF NAUSEA AND VOMITING
     Dosage: 16 mg, bid
     Route: 048
     Dates: start: 20120724, end: 20120727
  11. PRIMPERAN [Concomitant]
     Indication: PROPHYLAXIS OF NAUSEA AND VOMITING
     Dosage: 105 mg, tid
     Route: 048
     Dates: start: 20120724, end: 20120730

REACTIONS (7)
  - Pneumonia [Fatal]
  - Sepsis [Fatal]
  - Febrile neutropenia [Fatal]
  - Platelet count decreased [Not Recovered/Not Resolved]
  - Diarrhoea [Recovering/Resolving]
  - Stomatitis [Unknown]
  - Decreased appetite [Unknown]
